FAERS Safety Report 23560046 (Version 2)
Quarter: 2025Q4

REPORT INFORMATION
  Report Type: Report from Study
  Country: CA (occurrence: CA)
  Receive Date: 20240223
  Receipt Date: 20251014
  Transmission Date: 20260118
  Serious: Yes (Other)
  Sender: NOVARTIS
  Company Number: CA-002147023-NVSC2022CA280036

PATIENT
  Sex: Female

DRUGS (1)
  1. KESIMPTA [Suspect]
     Active Substance: OFATUMUMAB
     Indication: Relapsing-remitting multiple sclerosis
     Dosage: 20 MG, QMO
     Route: 058
     Dates: start: 20221129

REACTIONS (6)
  - Colitis [Unknown]
  - Haematochezia [Unknown]
  - Diarrhoea [Recovered/Resolved with Sequelae]
  - Multiple sclerosis relapse [Unknown]
  - Urinary tract infection [Recovered/Resolved with Sequelae]
  - Headache [Recovering/Resolving]

NARRATIVE: CASE EVENT DATE: 20221129
